FAERS Safety Report 24909090 (Version 1)
Quarter: 2025Q1

REPORT INFORMATION
  Report Type: Spontaneous
  Country: US (occurrence: US)
  Receive Date: 20250131
  Receipt Date: 20250131
  Transmission Date: 20250408
  Serious: Yes (Hospitalization, Other)
  Sender: ASCENT PHARMACEUTICALS INC
  Company Number: US-ASCENT-2025ASLIT00011

PATIENT
  Sex: Male

DRUGS (2)
  1. IBUPROFEN [Suspect]
     Active Substance: IBUPROFEN
     Indication: Product used for unknown indication
     Route: 048
     Dates: start: 202202
  2. DIPHENHYDRAMINE [Suspect]
     Active Substance: DIPHENHYDRAMINE
     Indication: Product used for unknown indication
     Route: 048

REACTIONS (3)
  - Acute respiratory distress syndrome [Recovering/Resolving]
  - Multiple organ dysfunction syndrome [Recovering/Resolving]
  - Overdose [Unknown]

NARRATIVE: CASE EVENT DATE: 20220201
